FAERS Safety Report 5631033-5 (Version None)
Quarter: 2008Q1

REPORT INFORMATION
  Report Type: 
  Country: None (occurrence: None)
  Receive Date: 20080219
  Receipt Date: 20080211
  Transmission Date: 20080703
  Serious: Yes (Other)
  Sender: FDA-Public Use
  Company Number: FR-PFIZER INC-2007101886

PATIENT
  Sex: Female
  Weight: 69 kg

DRUGS (2)
  1. CYTOTEC [Suspect]
     Indication: BLIGHTED OVUM
     Route: 048
     Dates: start: 20061218, end: 20061220
  2. SPASFON [Concomitant]
     Route: 048
     Dates: start: 20061218, end: 20061220

REACTIONS (2)
  - ABORTION [None]
  - DRUG INEFFECTIVE FOR UNAPPROVED INDICATION [None]
